FAERS Safety Report 4516256-0 (Version None)
Quarter: 2004Q4

REPORT INFORMATION
  Report Type: 
  Country: None (occurrence: None)
  Receive Date: 20041129
  Receipt Date: 20041116
  Transmission Date: 20050328
  Serious: Yes (Hospitalization)
  Sender: FDA-Public Use
  Company Number: 2004097025

PATIENT
  Sex: Female

DRUGS (1)
  1. CELEBREX [Suspect]
     Indication: ARTHRITIS
     Dosage: 200 MG

REACTIONS (5)
  - BLOOD PRESSURE FLUCTUATION [None]
  - DEPRESSION [None]
  - DIVERTICULITIS [None]
  - GASTRITIS [None]
  - PAIN [None]
